FAERS Safety Report 17008889 (Version 2)
Quarter: 2019Q4

REPORT INFORMATION
  Report Type: Other
  Country: CA (occurrence: CA)
  Receive Date: 20191108
  Receipt Date: 20191224
  Transmission Date: 20200122
  Serious: Yes (Other)
  Sender: FDA-Public Use
  Company Number: CA-APOTEX-2019AP024430

PATIENT
  Age: 54 Year
  Sex: Female

DRUGS (2)
  1. GABAPENTIN. [Concomitant]
     Active Substance: GABAPENTIN
     Indication: MIGRAINE
     Dosage: UNK
     Route: 065
  2. VALPROIC ACID. [Suspect]
     Active Substance: VALPROIC ACID
     Indication: MIGRAINE
     Dosage: UNK
     Route: 065

REACTIONS (10)
  - Raynaud^s phenomenon [Unknown]
  - Eye disorder [Unknown]
  - Brain injury [Unknown]
  - Feeling abnormal [Unknown]
  - Systemic lupus erythematosus [Unknown]
  - Seizure [Unknown]
  - Poor peripheral circulation [Unknown]
  - Drug ineffective for unapproved indication [Unknown]
  - Brain neoplasm [Unknown]
  - Fibromyalgia [Unknown]
